FAERS Safety Report 8760539 (Version 4)
Quarter: 2013Q1

REPORT INFORMATION
  Report Type: Spontaneous
  Country: US (occurrence: None)
  Receive Date: 20120822
  Receipt Date: 20121114
  Transmission Date: 20140127
  Serious: Yes (Hospitalization, Other)
  Sender: FDA-Public Use
  Company Number: LMI-2012-00261

PATIENT
  Age: 86 Year
  Sex: Female
  Weight: 69.85 kg

DRUGS (18)
  1. ABLAVAR [Suspect]
     Indication: PERIPHERAL ARTERIAL OCCLUSIVE DISEASE
     Route: 042
     Dates: start: 20120719, end: 20120719
  2. ABLAVAR [Suspect]
     Indication: CHOLANGIOGRAM
     Route: 042
     Dates: start: 20120719, end: 20120719
  3. ASA (ACETYLSALICYLIC ACID) [Concomitant]
  4. COREG (CARVEDILOL) [Concomitant]
  5. COLACE (DOCUSATE SODIUM) [Concomitant]
  6. LASIX (FUROSEMIDE) [Concomitant]
  7. LYRICA (PREGABALIN) [Concomitant]
  8. METHADONE (METHADONE) [Concomitant]
  9. OCUVITE (ASCORBIC ACID, TOCOPHEROL, RETINOL) [Concomitant]
  10. ACUPRIL (QUINAPRIL HYDROCHLORIDE) [Concomitant]
  11. MIRALAX [Concomitant]
  12. PRILOSEC [Concomitant]
  13. SENNA PLUS (SENNA ALEXANDRINA) [Concomitant]
  14. ZOCOR (SIMVASTATIN) [Concomitant]
  15. CENTRUM [Concomitant]
  16. VITAMIN C [Concomitant]
  17. COUMADIN (WARFARIN SODIUM) [Concomitant]
  18. LANTIS INSULIN (INSULIN GLARGINE) [Concomitant]

REACTIONS (4)
  - Blood urea increased [None]
  - Blood creatinine increased [None]
  - Glomerular filtration rate decreased [None]
  - Dialysis [None]
